FAERS Safety Report 24846066 (Version 1)
Quarter: 2025Q1

REPORT INFORMATION
  Report Type: Spontaneous
  Country: US (occurrence: None)
  Receive Date: 20250115
  Receipt Date: 20250115
  Transmission Date: 20250408
  Serious: Yes (Hospitalization, Other)
  Sender: FDA-CTU
  Company Number: None

PATIENT
  Age: 51 Year
  Sex: Female
  Weight: 87 kg

DRUGS (1)
  1. VANCOMYCIN [Suspect]
     Active Substance: VANCOMYCIN
     Indication: Wound
     Route: 041
     Dates: start: 20250106, end: 20250106

REACTIONS (4)
  - Dialysis [None]
  - Blood pressure decreased [None]
  - Pruritus [None]
  - Loss of consciousness [None]

NARRATIVE: CASE EVENT DATE: 20250106
